FAERS Safety Report 4456549-9 (Version None)
Quarter: 2004Q3

REPORT INFORMATION
  Report Type: 
  Country: None (occurrence: None)
  Receive Date: 20040921
  Receipt Date: 20040908
  Transmission Date: 20050211
  Serious: Yes (Hospitalization)
  Sender: FDA-Public Use
  Company Number: 2004059979

PATIENT
  Age: 82 Year
  Sex: Female
  Weight: 50 kg

DRUGS (3)
  1. NEURONTIN [Suspect]
     Indication: NEURALGIA
     Dosage: ORAL
     Route: 048
     Dates: start: 20031110, end: 20040111
  2. CANDESARTAN CILEXETIL (CANDESARTAN CILEXETIL) [Concomitant]
  3. ACETAMINOPHEN [Concomitant]

REACTIONS (2)
  - EXANTHEM [None]
  - PRURITUS [None]
